FAERS Safety Report 15453187 (Version 1)
Quarter: 2018Q4

REPORT INFORMATION
  Report Type: Spontaneous
  Country: US (occurrence: US)
  Receive Date: 20181001
  Receipt Date: 20181001
  Transmission Date: 20190204
  Serious: No
  Sender: FDA-Public Use
  Company Number: US-ALLERGAN-1814372US

PATIENT
  Age: 65 Year
  Sex: Female

DRUGS (3)
  1. RECTIV [Suspect]
     Active Substance: NITROGLYCERIN
     Indication: HAEMORRHOIDS
     Dosage: 1 INCH RECTALLY BID
     Route: 065
     Dates: start: 20180305, end: 20180307
  2. SYNTHROID [Concomitant]
     Active Substance: LEVOTHYROXINE SODIUM
     Indication: HYPOTHYROIDISM
     Dosage: 75 MG, UNK
  3. HYDROCHLOROTHIAZIDE. [Concomitant]
     Active Substance: HYDROCHLOROTHIAZIDE
     Dosage: UNK
     Dates: start: 201802

REACTIONS (1)
  - Headache [Unknown]
